FAERS Safety Report 9236992 (Version 3)
Quarter: 2013Q2

REPORT INFORMATION
  Report Type: Spontaneous
  Country: US (occurrence: US)
  Receive Date: 20130417
  Receipt Date: 20130603
  Transmission Date: 20140414
  Serious: No
  Sender: FDA-Public Use
  Company Number: US-PFIZER INC-2013121140

PATIENT
  Age: 38 Year
  Sex: Female
  Weight: 83.9 kg

DRUGS (2)
  1. LYRICA [Suspect]
     Indication: NERVE INJURY
     Dosage: 150 MG, 2X/DAY
     Dates: start: 2012
  2. LORTAB [Concomitant]
     Indication: INTERVERTEBRAL DISC PROTRUSION
     Dosage: ^10 MG^, 4X/DAY

REACTIONS (4)
  - Malaise [Not Recovered/Not Resolved]
  - Sinus disorder [Unknown]
  - Rhinorrhoea [Unknown]
  - Seasonal allergy [Unknown]
